FAERS Safety Report 4440857-1 (Version None)
Quarter: 2004Q3

REPORT INFORMATION
  Report Type: 
  Country: None (occurrence: None)
  Receive Date: 20040831
  Receipt Date: 20040820
  Transmission Date: 20050211
  Serious: Yes (Hospitalization)
  Sender: FDA-Public Use
  Company Number: APP200400704

PATIENT
  Age: 31 Year
  Sex: Female

DRUGS (2)
  1. CHORIONIC GONADORTOPIN INJ [Suspect]
     Indication: OVULATION INDUCTION
     Dosage: (10000 USP UNITS), INTRAMUSCULAR
     Route: 030
  2. PROGESTERONE [Concomitant]

REACTIONS (11)
  - ASCITES [None]
  - BLOOD ALBUMIN DECREASED [None]
  - BLOOD SODIUM DECREASED [None]
  - CONSTIPATION [None]
  - ECTOPIC PREGNANCY [None]
  - HAEMOGLOBIN DECREASED [None]
  - MUSCLE RIGIDITY [None]
  - OLIGURIA [None]
  - OVARIAN HYPERSTIMULATION SYNDROME [None]
  - PLEURAL EFFUSION [None]
  - WHITE BLOOD CELL COUNT INCREASED [None]
